FAERS Safety Report 25066960 (Version 1)
Quarter: 2025Q1

REPORT INFORMATION
  Report Type: Spontaneous
  Country: US (occurrence: US)
  Receive Date: 20250312
  Receipt Date: 20250312
  Transmission Date: 20250408
  Serious: Yes (Other)
  Sender: CELLTRION
  Company Number: US-CELLTRION INC.-2025US006896

PATIENT

DRUGS (1)
  1. INFLECTRA [Suspect]
     Active Substance: INFLIXIMAB-DYYB
     Indication: Nephrotic syndrome

REACTIONS (2)
  - Nephrotic syndrome [Unknown]
  - Intentional product use issue [Unknown]
